FAERS Safety Report 10296949 (Version 3)
Quarter: 2014Q3

REPORT INFORMATION
  Report Type: Report from Study
  Country: RU (occurrence: RU)
  Receive Date: 20140711
  Receipt Date: 20140806
  Transmission Date: 20150326
  Serious: Yes (Hospitalization)
  Sender: FDA-Public Use
  Company Number: RU-SA-2014SA087873

PATIENT
  Age: 60 Year
  Sex: Male
  Weight: 96 kg

DRUGS (6)
  1. OMEZ [Concomitant]
     Active Substance: OMEPRAZOLE
     Route: 048
     Dates: start: 2014
  2. PLAVIX [Suspect]
     Active Substance: CLOPIDOGREL BISULFATE
     Indication: THROMBOSIS PROPHYLAXIS
     Route: 065
     Dates: start: 201405, end: 20140512
  3. PRESTARIUM [Concomitant]
     Active Substance: PERINDOPRIL
     Indication: BLOOD PRESSURE ABNORMAL
     Dosage: STRENGTH: 2.5 MG
  4. PLAVIX [Suspect]
     Active Substance: CLOPIDOGREL BISULFATE
     Indication: THROMBOSIS PROPHYLAXIS
     Route: 065
     Dates: start: 20140513, end: 20140713
  5. IVABRADINE HYDROCHLORIDE [Concomitant]
     Active Substance: IVABRADINE HYDROCHLORIDE
     Route: 048
     Dates: start: 201405, end: 201406
  6. TORVACARD [Concomitant]
     Active Substance: ATORVASTATIN CALCIUM
     Route: 048
     Dates: start: 201405

REACTIONS (3)
  - Thrombosis in device [Recovered/Resolved]
  - Drug prescribing error [Unknown]
  - Ventricular extrasystoles [Recovered/Resolved]

NARRATIVE: CASE EVENT DATE: 20140513
